FAERS Safety Report 10185291 (Version 1)
Quarter: 2014Q2

REPORT INFORMATION
  Report Type: Spontaneous
  Country: US (occurrence: None)
  Receive Date: 20140520
  Receipt Date: 20140520
  Transmission Date: 20141212
  Serious: Yes (Disabling)
  Sender: FDA-Public Use
  Company Number: None

PATIENT
  Age: 27 Year
  Sex: Female
  Weight: 53.07 kg

DRUGS (1)
  1. VYVANSE [Suspect]
     Indication: ATTENTION DEFICIT/HYPERACTIVITY DISORDER
     Dosage: 1 PILL
     Route: 048
     Dates: start: 20100101, end: 20140428

REACTIONS (6)
  - Transient ischaemic attack [None]
  - Memory impairment [None]
  - Dysarthria [None]
  - Skin discolouration [None]
  - Aphasia [None]
  - Dysgraphia [None]
